FAERS Safety Report 7729494-0 (Version None)
Quarter: 2011Q3

REPORT INFORMATION
  Report Type: 
  Country: None (occurrence: None)
  Receive Date: 20110906
  Receipt Date: 20110831
  Transmission Date: 20111222
  Serious: Yes (Life-Threatening, Hospitalization)
  Sender: FDA-Public Use
  Company Number: FR-SANOFI-AVENTIS-2011SA055775

PATIENT
  Age: 53 Year
  Sex: Female

DRUGS (2)
  1. RIFATER [Suspect]
     Indication: PULMONARY TUBERCULOSIS
     Route: 048
     Dates: start: 20110413, end: 20110429
  2. RIFATER [Suspect]
     Route: 048
     Dates: start: 20110505, end: 20110520

REACTIONS (13)
  - MYELITIS [None]
  - TACHYCARDIA [None]
  - PARESIS [None]
  - RASH FOLLICULAR [None]
  - OEDEMA PERIPHERAL [None]
  - RENAL FAILURE [None]
  - QUADRIPLEGIA [None]
  - METABOLIC ACIDOSIS [None]
  - CYTOLYTIC HEPATITIS [None]
  - MULTI-ORGAN FAILURE [None]
  - OXYGEN SATURATION DECREASED [None]
  - RESPIRATORY DISTRESS [None]
  - JAUNDICE [None]
